FAERS Safety Report 4792702-2 (Version None)
Quarter: 2005Q4

REPORT INFORMATION
  Report Type: 
  Country: None (occurrence: None)
  Receive Date: 20051010
  Receipt Date: 20050927
  Transmission Date: 20060501
  Serious: Yes (Other)
  Sender: FDA-Public Use
  Company Number: US-MERCK-0509USA04715

PATIENT
  Age: 54 Year
  Sex: Male
  Weight: 73 kg

DRUGS (5)
  1. VIOXX [Suspect]
     Indication: OSTEOARTHRITIS
     Route: 048
     Dates: start: 19970101, end: 20040926
  2. LIPITOR [Concomitant]
     Route: 048
  3. NEXIUM [Concomitant]
     Route: 048
  4. DIOVAN [Concomitant]
     Route: 048
  5. ASPIRIN [Concomitant]
     Route: 048

REACTIONS (8)
  - CEREBRAL THROMBOSIS [None]
  - CEREBROVASCULAR ACCIDENT [None]
  - CERVICOBRACHIAL SYNDROME [None]
  - COMPLEX PARTIAL SEIZURES [None]
  - MYELOPATHY [None]
  - RADICULOPATHY [None]
  - TENSION HEADACHE [None]
  - TRANSIENT ISCHAEMIC ATTACK [None]
